FAERS Safety Report 5913615-6 (Version None)
Quarter: 2008Q4

REPORT INFORMATION
  Report Type: 
  Country: None (occurrence: None)
  Receive Date: 20081009
  Receipt Date: 20080929
  Transmission Date: 20090506
  Serious: Yes (Hospitalization)
  Sender: FDA-Public Use
  Company Number: FR-JNJFOC-20080805647

PATIENT
  Age: 55 Year
  Sex: Male

DRUGS (10)
  1. REMICADE [Suspect]
     Indication: PSORIATIC ARTHROPATHY
     Dosage: THIRD INFUSION
     Route: 042
  2. REMICADE [Suspect]
     Indication: RHEUMATOID ARTHRITIS
     Dosage: END OF JUL-2008, SECOND INFUSION
     Route: 042
  3. REMICADE [Suspect]
     Indication: SPONDYLOARTHROPATHY
     Dosage: BEGINNING OF JUL-2008, FIRST INFUSION
     Route: 042
  4. METHOTREXATE SODIUM [Suspect]
     Indication: PSORIATIC ARTHROPATHY
     Route: 048
  5. METHOTREXATE SODIUM [Suspect]
     Indication: RHEUMATOID ARTHRITIS
     Route: 048
  6. BIPROFENID [Concomitant]
     Indication: INFLAMMATORY PAIN
     Route: 048
  7. NEXIUM [Concomitant]
     Indication: GASTRIC ULCER
     Route: 048
  8. NEXIUM [Concomitant]
     Indication: DUODENAL ULCER
     Route: 048
  9. TOPALGIC [Concomitant]
     Indication: PAIN
     Route: 048
  10. SEROPRAM [Concomitant]
     Indication: MAJOR DEPRESSION
     Route: 048

REACTIONS (10)
  - CHILLS [None]
  - ERYTHEMA [None]
  - HEADACHE [None]
  - HYPERHIDROSIS [None]
  - HYPERTENSION [None]
  - INFUSION RELATED REACTION [None]
  - PARAESTHESIA [None]
  - PYREXIA [None]
  - T-LYMPHOCYTE COUNT DECREASED [None]
  - THROMBOCYTOPENIA [None]
